FAERS Safety Report 23111927 (Version 2)
Quarter: 2023Q4

REPORT INFORMATION
  Report Type: Report from Study
  Country: JP (occurrence: JP)
  Receive Date: 20231026
  Receipt Date: 20231115
  Transmission Date: 20240110
  Serious: Yes (Hospitalization)
  Sender: FDA-Public Use
  Company Number: JP-TAIHOP-2023-008900

PATIENT
  Age: 68 Year
  Sex: Male
  Weight: 56 kg

DRUGS (10)
  1. FUTIBATINIB [Suspect]
     Active Substance: FUTIBATINIB
     Indication: Non-small cell lung cancer
     Dosage: CYCLE 1
     Route: 048
     Dates: start: 20230123
  2. FUTIBATINIB [Suspect]
     Active Substance: FUTIBATINIB
     Dosage: CURRENT CYCLE UNKNOWN.
     Route: 048
     Dates: start: 20230529
  3. FUTIBATINIB [Suspect]
     Active Substance: FUTIBATINIB
     Dosage: CYCLE 13
     Route: 048
     Dates: start: 20231106
  4. ZIMBERELIMAB [Suspect]
     Active Substance: ZIMBERELIMAB
     Indication: Non-small cell lung cancer
     Dosage: CYCLE 1?DAILY DOSE: 360 MILLIGRAM(S)
     Route: 042
     Dates: start: 20230123
  5. FOSRENOL [Concomitant]
     Active Substance: LANTHANUM CARBONATE
     Indication: Hyperphosphataemia
     Dosage: DAILY DOSE: 2250 MILLIGRAM(S)
     Route: 048
     Dates: start: 20230911
  6. BETAMETHASONE DIPROPIONATE [Concomitant]
     Active Substance: BETAMETHASONE DIPROPIONATE
     Indication: Paronychia
     Dosage: ADEQUATE DOSE
     Route: 061
     Dates: start: 20230710
  7. FUSIDATE SODIUM [Concomitant]
     Active Substance: FUSIDATE SODIUM
     Indication: Paronychia
     Dosage: ADEQUATE DOSE
     Route: 061
     Dates: start: 20231002
  8. RINDERON [Concomitant]
     Indication: Rash
     Dosage: ADEQUATE DOSE
     Route: 061
     Dates: start: 20230221
  9. HYALURONATE SODIUM [Concomitant]
     Active Substance: HYALURONATE SODIUM
     Indication: Dry eye
     Dosage: ONCE OR MORE A DAY
     Dates: start: 20230320
  10. HERBALS [Concomitant]
     Active Substance: HERBALS
     Indication: Routine health maintenance
     Dosage: PRIOR TO INFORMED CONSENT.?DAILY DOSE: 5 GRAM(S)
     Route: 048

REACTIONS (2)
  - Dyspnoea [Recovering/Resolving]
  - Hyponatraemia [Recovering/Resolving]

NARRATIVE: CASE EVENT DATE: 20231017
